FAERS Safety Report 22300312 (Version 1)
Quarter: 2023Q2

REPORT INFORMATION
  Report Type: Spontaneous
  Country: GR (occurrence: GR)
  Receive Date: 20230509
  Receipt Date: 20230509
  Transmission Date: 20230722
  Serious: Yes (Life-Threatening, Other)
  Sender: FDA-Public Use
  Company Number: GR-SERVIER-S23003560

PATIENT

DRUGS (7)
  1. ONCASPAR [Suspect]
     Active Substance: PEGASPARGASE
     Indication: B-cell type acute leukaemia
     Dosage: 3350 [IU], EVERY 2 WEEKS
     Route: 042
     Dates: start: 20220930, end: 20221014
  2. ONCASPAR [Suspect]
     Active Substance: PEGASPARGASE
     Dosage: UNK
     Route: 042
     Dates: start: 20230301
  3. PREDNISONE [Concomitant]
     Active Substance: PREDNISONE
     Indication: B-cell type acute leukaemia
     Dosage: 26 MG, TID
     Route: 042
     Dates: start: 20220920, end: 20221018
  4. ONCOVIN [Concomitant]
     Active Substance: VINCRISTINE SULFATE
     Indication: B-cell type acute leukaemia
     Dosage: 1.5 MG/M2
     Route: 042
     Dates: start: 20220926, end: 20221017
  5. DAUNORUBICIN [Concomitant]
     Active Substance: DAUNORUBICIN
     Indication: B-cell type acute leukaemia
     Dosage: 30 MG/M2
     Route: 042
     Dates: start: 20220926, end: 20221017
  6. ONDANSETRON [Concomitant]
     Active Substance: ONDANSETRON
     Indication: B-cell type acute leukaemia
     Dosage: 8 MG, TID
     Route: 042
     Dates: start: 20220922
  7. LOSEC [Concomitant]
     Active Substance: OMEPRAZOLE
     Indication: B-cell type acute leukaemia
     Dosage: 20 MG, BID
     Route: 042
     Dates: start: 20221017

REACTIONS (1)
  - Thrombosis [Recovered/Resolved]

NARRATIVE: CASE EVENT DATE: 20221014
